FAERS Safety Report 13280389 (Version 1)
Quarter: 2017Q1

REPORT INFORMATION
  Report Type: Report from Study
  Country: BR (occurrence: BR)
  Receive Date: 20170301
  Receipt Date: 20170301
  Transmission Date: 20170428
  Serious: Yes (Other)
  Sender: FDA-Public Use
  Company Number: BR-ROCHE-786282

PATIENT
  Age: 43 Year
  Sex: Female
  Weight: 93 kg

DRUGS (15)
  1. CLONAZEPAM. [Concomitant]
     Active Substance: CLONAZEPAM
     Route: 065
  2. PREDNISONE. [Concomitant]
     Active Substance: PREDNISONE
     Indication: RHEUMATOID ARTHRITIS
     Route: 048
     Dates: start: 2002
  3. FUROSEMIDE. [Concomitant]
     Active Substance: FUROSEMIDE
     Route: 048
     Dates: start: 2015
  4. METHOTREXATE. [Concomitant]
     Active Substance: METHOTREXATE
  5. MAREVAN [Concomitant]
     Active Substance: WARFARIN SODIUM
     Route: 048
     Dates: start: 2015
  6. OMEPRAZOLE. [Concomitant]
     Active Substance: OMEPRAZOLE
     Indication: PROPHYLAXIS
     Route: 048
  7. MABTHERA [Suspect]
     Active Substance: RITUXIMAB
     Route: 042
  8. CYMBALTA [Concomitant]
     Active Substance: DULOXETINE HYDROCHLORIDE
     Route: 065
  9. DEPURA [Concomitant]
     Active Substance: CHOLECALCIFEROL
     Indication: HYPOVITAMINOSIS
     Route: 048
     Dates: start: 2014
  10. BROMAZEPAM [Concomitant]
     Active Substance: BROMAZEPAM
     Indication: DEPRESSION
     Route: 048
     Dates: start: 2011
  11. MABTHERA [Suspect]
     Active Substance: RITUXIMAB
     Indication: RHEUMATOID ARTHRITIS
     Dosage: 1000MG/ML
     Route: 042
  12. MABTHERA [Suspect]
     Active Substance: RITUXIMAB
     Indication: FIBROMYALGIA
     Route: 042
     Dates: start: 20160712, end: 20160712
  13. RIVOTRIL [Concomitant]
     Active Substance: CLONAZEPAM
     Dosage: ANTIDEPRESSANT
     Route: 048
  14. NORIPURUM [Concomitant]
     Active Substance: IRON POLYMALTOSE
     Indication: ANAEMIA
     Route: 048
     Dates: start: 2014
  15. METFORMINE [Concomitant]
     Active Substance: METFORMIN HYDROCHLORIDE
     Indication: DIABETES MELLITUS
     Route: 048
     Dates: start: 2015

REACTIONS (6)
  - Infusion related reaction [Recovered/Resolved]
  - Cough [Recovered/Resolved]
  - Skin mass [Unknown]
  - Cough [Recovered/Resolved]
  - Throat irritation [Unknown]
  - Dyspnoea [Recovered/Resolved]

NARRATIVE: CASE EVENT DATE: 200907
